FAERS Safety Report 5130926-5 (Version None)
Quarter: 2006Q3

REPORT INFORMATION
  Report Type: 
  Country: None (occurrence: None)
  Receive Date: 20060829
  Receipt Date: 20060701
  Transmission Date: 20061208
  Serious: No
  Sender: FDA-Public Use
  Company Number: PHEH2006US08575

PATIENT
  Age: 42 Year
  Sex: Male

DRUGS (1)
  1. EXJADE [Suspect]
     Dosage: 2000 MG, QD, ORAL
     Route: 048
     Dates: start: 20060606, end: 20060630

REACTIONS (5)
  - GINGIVAL PAIN [None]
  - HYPERCHLORHYDRIA [None]
  - LACERATION [None]
  - POLLAKIURIA [None]
  - SWOLLEN TONGUE [None]
